FAERS Safety Report 17841033 (Version 1)
Quarter: 2020Q2

REPORT INFORMATION
  Report Type: Report from Study
  Country: US (occurrence: US)
  Receive Date: 20200529
  Receipt Date: 20200529
  Transmission Date: 20200714
  Serious: Yes (Other)
  Sender: FDA-Public Use
  Company Number: US-ROCHE-2605622

PATIENT
  Sex: Female

DRUGS (1)
  1. ATEZOLIZUMAB. [Suspect]
     Active Substance: ATEZOLIZUMAB
     Indication: SQUAMOUS CELL CARCINOMA OF LUNG
     Dosage: FIXED DOSE
     Route: 065

REACTIONS (4)
  - Myalgia [Unknown]
  - Chorioretinitis [Recovered/Resolved]
  - Cystoid macular oedema [Not Recovered/Not Resolved]
  - Superior limbic keratoconjunctivitis [Recovered/Resolved]
